FAERS Safety Report 9353647 (Version 1)
Quarter: 2013Q2

REPORT INFORMATION
  Report Type: Spontaneous
  Country: FR (occurrence: None)
  Receive Date: 20130612
  Receipt Date: 20130612
  Transmission Date: 20140414
  Serious: Yes (Life-Threatening)
  Sender: FDA-Public Use
  Company Number: FK201301961

PATIENT
  Age: 1 Month
  Sex: 0

DRUGS (6)
  1. ROPIVACAINE HYDROCHLORIDE [Suspect]
     Indication: ANALGESIC THERAPY
     Route: 033
     Dates: start: 20121220, end: 20121221
  2. PARACETAMOL (PARACETAMOL) (PARACETAMOL) [Concomitant]
  3. NALBUPHINE (NALBUPHINE) [Concomitant]
  4. GENTAMICIN (GENTAMICIN) (GENTAMICIN) [Concomitant]
  5. CEFOTAXINE (CEFOTAXINE) (CEFOTAXINE) [Concomitant]
  6. METRONIDAZOLE [Concomitant]

REACTIONS (5)
  - Convulsion [None]
  - Cardio-respiratory arrest [None]
  - Cholestasis [None]
  - Pulmonary artery stenosis [None]
  - Cardiotoxicity [None]
